FAERS Safety Report 7830908-6 (Version None)
Quarter: 2011Q4

REPORT INFORMATION
  Report Type: 
  Country: None (occurrence: None)
  Receive Date: 20111021
  Receipt Date: 20111017
  Transmission Date: 20120403
  Serious: No
  Sender: FDA-Public Use
  Company Number: US-PFIZER INC-2011249642

PATIENT
  Sex: Female

DRUGS (5)
  1. TAMSULOSIN HYDROCHLORIDE [Concomitant]
     Dosage: 0.4 MG, UNK
  2. TYLENOL W/ CODEINE NO. 4 [Concomitant]
     Dosage: UNK
  3. GABAPENTIN [Concomitant]
     Dosage: 100 MG, UNK
  4. SUTENT [Suspect]
     Dosage: 50 MG, 1X/DAY (FOR 4 WEEKS, THEN OFF 2 WEEKS)
     Route: 048
  5. ATIVAN [Concomitant]
     Dosage: 0.5 MG, UNK

REACTIONS (4)
  - AGEUSIA [None]
  - DRY SKIN [None]
  - FATIGUE [None]
  - DECREASED APPETITE [None]
